FAERS Safety Report 9728927 (Version 2)
Quarter: 2014Q1

REPORT INFORMATION
  Report Type: Spontaneous
  Country: FR (occurrence: FR)
  Receive Date: 20131204
  Receipt Date: 20140311
  Transmission Date: 20141002
  Serious: Yes (Hospitalization, Other)
  Sender: FDA-Public Use
  Company Number: FR-PFIZER INC-2013344813

PATIENT
  Age: 66 Year
  Sex: Male

DRUGS (6)
  1. CORDARONE [Suspect]
     Dosage: 200 MG, DAILY
     Route: 048
  2. PRADAXA [Interacting]
     Dosage: 220 MG, DAILY
     Route: 048
     Dates: start: 201202, end: 20130505
  3. EZETROL [Concomitant]
     Dosage: UNK
  4. COVERSYL [Concomitant]
     Dosage: UNK
  5. DOLIPRANE [Concomitant]
     Dosage: UNK
  6. AUGMENTIN [Concomitant]
     Dosage: UNK
     Dates: start: 20130502

REACTIONS (4)
  - Drug interaction [Unknown]
  - Haemarthrosis [Recovered/Resolved]
  - Haematoma infection [Recovered/Resolved]
  - Rotator cuff syndrome [Unknown]
